FAERS Safety Report 7936592-5 (Version None)
Quarter: 2011Q4

REPORT INFORMATION
  Report Type: 
  Country: None (occurrence: None)
  Receive Date: 20111123
  Receipt Date: 20111111
  Transmission Date: 20120403
  Serious: Yes (Hospitalization)
  Sender: FDA-Public Use
  Company Number: JP-PFIZER INC-2011264973

PATIENT
  Age: 29 Year
  Sex: Female
  Weight: 60 kg

DRUGS (5)
  1. CRIZOTINIB [Suspect]
     Dosage: 250 MG, 2X/DAY
     Route: 048
     Dates: start: 20111108
  2. KINDAVATE [Concomitant]
     Indication: PRURITUS
     Dosage: AS NEEDED
     Route: 061
     Dates: start: 20100921
  3. MILMAG [Concomitant]
     Indication: CONSTIPATION
     Dosage: 2 TABLETS,  AS NEEDED
     Route: 048
     Dates: start: 20110510
  4. OLOPATADINE HCL [Concomitant]
     Indication: PRURITUS
     Dosage: 1 TABLET, AS NEEDED
     Route: 048
     Dates: start: 20110426
  5. CRIZOTINIB [Suspect]
     Indication: NON-SMALL CELL LUNG CANCER
     Dosage: 250 MG, 2X/DAY
     Route: 048
     Dates: start: 20100720, end: 20111027

REACTIONS (1)
  - PULMONARY ARTERY THROMBOSIS [None]
